FAERS Safety Report 23068262 (Version 5)
Quarter: 2025Q2

REPORT INFORMATION
  Report Type: Report from Study
  Country: DE (occurrence: DE)
  Receive Date: 20231016
  Receipt Date: 20250527
  Transmission Date: 20250716
  Serious: Yes (Hospitalization, Other)
  Sender: TEVA
  Company Number: DE-BRISTOL-MYERS SQUIBB COMPANY-2023-080795

PATIENT
  Age: 70 Year
  Sex: Female

DRUGS (19)
  1. CARBOPLATIN [Suspect]
     Active Substance: CARBOPLATIN
     Indication: Non-small cell lung cancer
     Dosage: 400 MG (FREQUENCY: DAY 1, 8, 15)
     Route: 042
     Dates: start: 20230328, end: 20230419
  2. CARBOPLATIN [Suspect]
     Active Substance: CARBOPLATIN
     Indication: Non-small cell lung cancer
     Route: 042
     Dates: start: 20230328, end: 20230419
  3. YERVOY [Suspect]
     Active Substance: IPILIMUMAB
     Indication: Non-small cell lung cancer
     Route: 042
     Dates: start: 20230328, end: 20230621
  4. YERVOY [Suspect]
     Active Substance: IPILIMUMAB
     Indication: Non-small cell lung cancer
     Route: 042
     Dates: start: 20230328
  5. SODIUM PICOSULFATE [Concomitant]
     Active Substance: SODIUM PICOSULFATE
     Indication: Product used for unknown indication
     Route: 065
     Dates: start: 20230610, end: 20230610
  6. POTASSIUM CHLORIDE [Concomitant]
     Active Substance: POTASSIUM CHLORIDE
     Indication: Prophylaxis
     Route: 065
     Dates: start: 20230630, end: 20230701
  7. DOXYLAMINE\FOLIC ACID\PYRIDOXINE [Concomitant]
     Active Substance: DOXYLAMINE\FOLIC ACID\PYRIDOXINE
     Indication: Product used for unknown indication
     Route: 065
     Dates: start: 20230707, end: 20230708
  8. DOXYLAMINE\FOLIC ACID\PYRIDOXINE [Concomitant]
     Active Substance: DOXYLAMINE\FOLIC ACID\PYRIDOXINE
     Indication: Product used for unknown indication
     Route: 065
     Dates: start: 20230712, end: 20230712
  9. DOXYLAMINE\FOLIC ACID\PYRIDOXINE [Concomitant]
     Active Substance: DOXYLAMINE\FOLIC ACID\PYRIDOXINE
     Indication: Product used for unknown indication
     Route: 065
     Dates: start: 20230608, end: 20230613
  10. PREDNISOLONE [Concomitant]
     Active Substance: PREDNISOLONE
     Indication: Prophylaxis
     Route: 065
     Dates: start: 20230708, end: 20230710
  11. PREDNISOLONE [Concomitant]
     Active Substance: PREDNISOLONE
     Indication: Prophylaxis
     Route: 065
     Dates: start: 20230711
  12. MCP [Concomitant]
     Active Substance: METOCLOPRAMIDE HYDROCHLORIDE
     Indication: Product used for unknown indication
     Route: 065
     Dates: start: 20230707, end: 20230710
  13. MCP [Concomitant]
     Active Substance: METOCLOPRAMIDE HYDROCHLORIDE
     Indication: Product used for unknown indication
     Route: 065
     Dates: start: 20230608, end: 20230614
  14. PANTOPRAZOLE [Concomitant]
     Active Substance: PANTOPRAZOLE
     Indication: Prophylaxis
     Route: 065
     Dates: start: 20230711
  15. PANTOPRAZOLE [Concomitant]
     Active Substance: PANTOPRAZOLE
     Indication: Prophylaxis
     Route: 065
     Dates: start: 20230708, end: 20230710
  16. GRANISETRON [Concomitant]
     Active Substance: GRANISETRON
     Indication: Product used for unknown indication
     Route: 065
     Dates: start: 20230628, end: 20230702
  17. OPDIVO [Suspect]
     Active Substance: NIVOLUMAB
     Indication: Non-small cell lung cancer
     Dosage: 1080 MG, QW (360 MG, TIW)
     Route: 042
     Dates: start: 20230328, end: 20230621
  18. OPDIVO [Suspect]
     Active Substance: NIVOLUMAB
     Indication: Non-small cell lung cancer
     Dosage: 1080 MG, QW (360 MG, TIW)
     Route: 042
     Dates: start: 20230328
  19. OPDIVO [Suspect]
     Active Substance: NIVOLUMAB
     Indication: Non-small cell lung cancer
     Dosage: 1080 MG, QW (360 MG, TIW)
     Route: 042
     Dates: start: 20230328

REACTIONS (10)
  - Immune-mediated enterocolitis [Recovered/Resolved]
  - Vomiting [Unknown]
  - Diarrhoea [Recovered/Resolved]
  - Asthenia [Unknown]
  - Dysphagia [Unknown]
  - General physical health deterioration [Unknown]
  - Renal impairment [Unknown]
  - Hypophagia [Unknown]
  - Syncope [Recovered/Resolved]
  - Off label use [Unknown]

NARRATIVE: CASE EVENT DATE: 20230101
